FAERS Safety Report 7879009-1 (Version None)
Quarter: 2011Q4

REPORT INFORMATION
  Report Type: 
  Country: None (occurrence: None)
  Receive Date: 20111101
  Receipt Date: 20111024
  Transmission Date: 20120403
  Serious: Yes (Hospitalization, Other)
  Sender: FDA-Public Use
  Company Number: PHEH2011US05487

PATIENT
  Sex: Female
  Weight: 71.4 kg

DRUGS (6)
  1. VITAMIN D [Concomitant]
     Dosage: 50 KIU, WEEKLY
     Route: 048
  2. KEPPRA [Concomitant]
     Dosage: 500 MG, DAILY
     Route: 048
  3. CONTRACEPTIVES [Concomitant]
     Dosage: UNK UKN, UNK
     Route: 062
  4. NORTRIPTYLINE HCL [Concomitant]
     Dosage: 125 MG, UNK
     Route: 048
  5. NUVIGIL [Concomitant]
     Dosage: 150 MG, DAILY
     Route: 048
  6. GILENYA [Suspect]
     Indication: MULTIPLE SCLEROSIS
     Dosage: 0.5 MG, DAILY
     Route: 048
     Dates: start: 20101231

REACTIONS (3)
  - PALPITATIONS [None]
  - SUPRAVENTRICULAR TACHYCARDIA [None]
  - CHEST PAIN [None]
